FAERS Safety Report 9350651 (Version 1)
Quarter: 2013Q2

REPORT INFORMATION
  Report Type: Report from Study
  Country: DE (occurrence: DE)
  Receive Date: 20130617
  Receipt Date: 20130617
  Transmission Date: 20140414
  Serious: Yes (Other)
  Sender: FDA-Public Use
  Company Number: DE-B.I. PHARMACEUTICALS,INC./RIDGEFIELD-2013-DE-01614DE

PATIENT
  Age: 2 Year
  Sex: Female
  Weight: 12 kg

DRUGS (3)
  1. MICARDIS [Suspect]
     Dosage: 3 ANZ
     Route: 048
     Dates: start: 20130611, end: 20130611
  2. L THYROXIN [Suspect]
     Dosage: 1 ANZ
     Route: 048
     Dates: start: 20130611, end: 20130611
  3. VESIKUR [Suspect]
     Dosage: 1 ANZ
     Route: 048
     Dates: start: 20130611, end: 20130611

REACTIONS (1)
  - Accidental exposure to product by child [Unknown]
